FAERS Safety Report 23111665 (Version 2)
Quarter: 2024Q1

REPORT INFORMATION
  Report Type: Spontaneous
  Country: US (occurrence: US)
  Receive Date: 20231026
  Receipt Date: 20240111
  Transmission Date: 20240409
  Serious: Yes (Other)
  Sender: FDA-Public Use
  Company Number: US-Blueprint Medicines Corporation-1629

PATIENT
  Sex: Female

DRUGS (2)
  1. AYVAKIT [Suspect]
     Active Substance: AVAPRITINIB
     Indication: Systemic mastocytosis
     Route: 065
  2. AYVAKIT [Suspect]
     Active Substance: AVAPRITINIB
     Route: 065

REACTIONS (8)
  - Rheumatoid arthritis [Unknown]
  - Osteoporosis [Unknown]
  - Eosinophil count decreased [Unknown]
  - Basophil count decreased [Unknown]
  - Granulocytes abnormal [Unknown]
  - White blood cell count decreased [Unknown]
  - Albumin globulin ratio increased [Unknown]
  - Arthralgia [Unknown]
